FAERS Safety Report 5638271-6 (Version None)
Quarter: 2008Q1

REPORT INFORMATION
  Report Type: 
  Country: None (occurrence: None)
  Receive Date: 20080226
  Receipt Date: 20080226
  Transmission Date: 20080703
  Serious: Yes (Disabling)
  Sender: FDA-Public Use
  Company Number: None

PATIENT
  Age: 40 Year
  Sex: Male
  Weight: 120 kg

DRUGS (14)
  1. HEPARIN [Suspect]
     Indication: THROMBOSIS PROPHYLAXIS
     Dosage: 5000 UNITS Q8HRS SQ
     Route: 058
  2. HEPARIN [Suspect]
     Indication: PULMONARY EMBOLISM
     Dosage: 6160 UNITS ONCE IV BOLUS; ONCE
     Route: 040
  3. ABACAVIR [Concomitant]
  4. ACYCLOVIR [Concomitant]
  5. ATAZANAVIR SULFATE [Concomitant]
  6. CARVEDILOL [Concomitant]
  7. CEFEPIME [Concomitant]
  8. CLINDAMYCIN HCL [Concomitant]
  9. LABETALOL HCL [Concomitant]
  10. LAMIVUDINE [Concomitant]
  11. MOMETASONE FUROATE [Concomitant]
  12. MOXIFLOXACIN HCL [Concomitant]
  13. PROCARDIA XL [Concomitant]
  14. ZOSYN [Concomitant]

REACTIONS (6)
  - BRADYCARDIA [None]
  - CARDIO-RESPIRATORY ARREST [None]
  - HYPOTENSION [None]
  - HYPOXIA [None]
  - PULMONARY EMBOLISM [None]
  - URTICARIA [None]
